FAERS Safety Report 9383012 (Version 1)
Quarter: 2013Q3

REPORT INFORMATION
  Report Type: Report from Study
  Country: US (occurrence: US)
  Receive Date: 20130703
  Receipt Date: 20130703
  Transmission Date: 20140515
  Serious: Yes (Other)
  Sender: FDA-Public Use
  Company Number: US-ABBOTT-13P-163-1074737-00

PATIENT
  Age: 42 Year
  Sex: Female

DRUGS (7)
  1. HUMIRA [Suspect]
     Indication: CROHN^S DISEASE
     Dates: start: 20130318
  2. BUDESONIDE [Concomitant]
     Indication: CROHN^S DISEASE
     Dosage: WEANING DOSE
     Route: 048
  3. PEPCID [Concomitant]
     Indication: GASTROOESOPHAGEAL REFLUX DISEASE
     Dosage: DAILY
  4. TRIAMTERENE [Concomitant]
     Indication: HYPERTENSION
     Route: 048
  5. ALPRAZOLAM [Concomitant]
     Indication: ANXIETY
  6. PREVACID [Concomitant]
     Indication: NAUSEA
     Route: 048
  7. ABILIFY [Concomitant]
     Indication: DEPRESSION
     Route: 048

REACTIONS (8)
  - Rectal ulcer [Not Recovered/Not Resolved]
  - Rectal haemorrhage [Not Recovered/Not Resolved]
  - Depression [Unknown]
  - Injection site pain [Recovered/Resolved]
  - Nausea [Unknown]
  - Abdominal pain [Unknown]
  - Procedural pain [Unknown]
  - Fatigue [Unknown]
